FAERS Safety Report 9907574 (Version 1)
Quarter: 2014Q1

REPORT INFORMATION
  Report Type: Report from Study
  Country: US (occurrence: US)
  Receive Date: 20140218
  Receipt Date: 20140218
  Transmission Date: 20141002
  Serious: Yes (Hospitalization)
  Sender: FDA-Public Use
  Company Number: US-PFIZER INC-2014043650

PATIENT
  Age: 63 Year
  Sex: Male
  Weight: 80.8 kg

DRUGS (11)
  1. DOXORUBICIN HCL [Suspect]
     Indication: SARCOMA
     Dosage: UNK, CYCLIC
     Route: 040
     Dates: start: 20120606
  2. DOXORUBICIN HCL [Suspect]
     Dosage: 56.25 MG/M2 - 116MG/BOLUS/CYCLE #4;
     Route: 040
     Dates: start: 20120822, end: 20120822
  3. ATIVAN [Concomitant]
     Dosage: UNK
     Dates: start: 20120613
  4. EFFEXOR-XR [Concomitant]
     Dosage: UNK
     Dates: start: 20120711
  5. FENTANYL [Concomitant]
     Dosage: UNK
     Dates: start: 20120830
  6. FERROUS SULFATE [Concomitant]
     Dosage: UNK
     Dates: start: 20120815
  7. NEURONTIN [Concomitant]
     Dosage: UNK
     Dates: start: 20120815
  8. OXYCODONE [Concomitant]
     Dosage: UNK
     Dates: start: 20120302
  9. COMPAZINE [Concomitant]
     Dosage: UNK
     Dates: start: 20120718
  10. ZOFRAN [Concomitant]
     Dosage: UNK
     Dates: start: 20120701
  11. NEULASTA [Concomitant]
     Dosage: UNK
     Dates: start: 20120830, end: 20120830

REACTIONS (1)
  - Urinary tract infection [Recovered/Resolved]
